FAERS Safety Report 5808380-7 (Version None)
Quarter: 2008Q3

REPORT INFORMATION
  Report Type: 
  Country: None (occurrence: None)
  Receive Date: 20080714
  Receipt Date: 20080703
  Transmission Date: 20090109
  Serious: Yes (Hospitalization, Other)
  Sender: FDA-Public Use
  Company Number: PHEH2008US05064

PATIENT
  Sex: Female

DRUGS (4)
  1. RECLAST [Suspect]
     Indication: OSTEOPOROSIS
     Dosage: 5 MG, ONCE/SINGLE
     Dates: start: 20080101
  2. CALCIUM [Concomitant]
     Dosage: 1800 MG, UNK
  3. POTASSIUM CHLORIDE [Concomitant]
  4. VITAMIN D [Concomitant]

REACTIONS (7)
  - ANKLE FRACTURE [None]
  - BONE PAIN [None]
  - FALL [None]
  - FEMUR FRACTURE [None]
  - HIP FRACTURE [None]
  - HIP SURGERY [None]
  - LOWER LIMB FRACTURE [None]
